FAERS Safety Report 12519932 (Version 2)
Quarter: 2016Q4

REPORT INFORMATION
  Report Type: Spontaneous
  Country: JP (occurrence: JP)
  Receive Date: 20160630
  Receipt Date: 20161221
  Transmission Date: 20170207
  Serious: Yes (Hospitalization)
  Sender: FDA-Public Use
  Company Number: JP-WARNER CHILCOTT, LLC-1054453

PATIENT
  Age: 61 Year
  Sex: Female

DRUGS (3)
  1. ACTONEL [Suspect]
     Active Substance: RISEDRONATE SODIUM
     Indication: OSTEOPOROSIS
     Route: 048
  2. GLAKAY [Suspect]
     Active Substance: MENATETRENONE
     Route: 048
  3. ALFACALCIDOL [Suspect]
     Active Substance: ALFACALCIDOL

REACTIONS (4)
  - Rash [Unknown]
  - Viral infection [Unknown]
  - Pyrexia [Recovered/Resolved]
  - Drug-induced liver injury [Recovered/Resolved]

NARRATIVE: CASE EVENT DATE: 20160506
